FAERS Safety Report 4654315-2 (Version None)
Quarter: 2005Q2

REPORT INFORMATION
  Report Type: 
  Country: None (occurrence: None)
  Receive Date: 20050404
  Receipt Date: 20041213
  Transmission Date: 20051028
  Serious: No
  Sender: FDA-Public Use
  Company Number: USA041082502

PATIENT
  Sex: Female

DRUGS (3)
  1. CYMBALTA [Suspect]
     Indication: DEPRESSION
     Dosage: 30 MG/2X DAY
     Dates: start: 20040831
  2. PAXIL [Concomitant]
  3. PROVIGIL [Concomitant]

REACTIONS (9)
  - ANGER [None]
  - CONFUSIONAL STATE [None]
  - DISTURBANCE IN ATTENTION [None]
  - DRUG INEFFECTIVE [None]
  - DRUG INTERACTION [None]
  - HOSTILITY [None]
  - IMPULSIVE BEHAVIOUR [None]
  - IRRITABILITY [None]
  - MENTAL IMPAIRMENT [None]
